FAERS Safety Report 20336556 (Version 1)
Quarter: 2022Q1

REPORT INFORMATION
  Report Type: Spontaneous
  Country: US (occurrence: None)
  Receive Date: 20220114
  Receipt Date: 20220114
  Transmission Date: 20220423
  Serious: No
  Sender: FDA-Public Use
  Company Number: None

PATIENT
  Sex: Female
  Weight: 42.5 kg

DRUGS (14)
  1. ESTRADIOL VAGINAL CREAM [Suspect]
     Active Substance: ESTRADIOL
     Indication: Product used for unknown indication
     Dosage: FREQUENCY : TWICE A WEEK;?
     Route: 067
     Dates: start: 20211013, end: 20211013
  2. Azelastine Nasal Solution [Concomitant]
  3. VITAMIN D NOS [Concomitant]
     Active Substance: VITAMIN D NOS
  4. VITAMIN E [Concomitant]
     Active Substance: .ALPHA.-TOCOPHEROL
  5. FISH OIL [Concomitant]
     Active Substance: FISH OIL
  6. ZINC [Concomitant]
     Active Substance: ZINC
  7. C [Concomitant]
  8. CRANBERRY [Concomitant]
     Active Substance: CRANBERRY
  9. HERBALS\TURMERIC [Concomitant]
     Active Substance: HERBALS\TURMERIC
  10. PROBIOTICS NOS [Concomitant]
     Active Substance: PROBIOTICS NOS
  11. BIOTIN [Concomitant]
     Active Substance: BIOTIN
  12. Uqora [Concomitant]
  13. LOW DOSE ASPIRIN [Concomitant]
     Active Substance: ASPIRIN
  14. ZYRTEC [Concomitant]
     Active Substance: CETIRIZINE HYDROCHLORIDE

REACTIONS (6)
  - Vulvovaginal discomfort [None]
  - Vulvovaginal pruritus [None]
  - Vulvovaginal burning sensation [None]
  - Pollakiuria [None]
  - Urinary retention [None]
  - Urinary tract infection [None]
